FAERS Safety Report 5522203-5 (Version None)
Quarter: 2007Q4

REPORT INFORMATION
  Report Type: 
  Country: None (occurrence: None)
  Receive Date: 20071120
  Receipt Date: 20071116
  Transmission Date: 20080405
  Serious: Yes (Other)
  Sender: FDA-Public Use
  Company Number: B0495669A

PATIENT
  Sex: Female
  Weight: 2.23 kg

DRUGS (4)
  1. ALBUTEROL [Suspect]
     Indication: ASTHMA
  2. BUDESONIDE [Suspect]
     Indication: ASTHMA
     Dates: start: 20051001
  3. FLUOXETINE [Suspect]
     Indication: DEPRESSION
  4. FORMOTEROL FUMARATE [Suspect]
     Indication: ASTHMA
     Dates: start: 20051001

REACTIONS (1)
  - SEPSIS [None]
